FAERS Safety Report 9215969 (Version 3)
Quarter: 2013Q2

REPORT INFORMATION
  Report Type: Spontaneous
  Country: GB (occurrence: GB)
  Receive Date: 20130408
  Receipt Date: 20130415
  Transmission Date: 20140414
  Serious: Yes (Other)
  Sender: FDA-Public Use
  Company Number: GB-JNJFOC-20130400282

PATIENT
  Age: 44 Year
  Sex: Female

DRUGS (8)
  1. STELARA [Suspect]
     Indication: PSORIASIS
     Route: 058
  2. PROZAC [Concomitant]
     Route: 065
  3. VALLERGAN [Concomitant]
     Route: 065
  4. SEROQUEL [Concomitant]
     Route: 065
  5. AZATHIOPRINE [Concomitant]
     Route: 065
  6. NEXIUM [Concomitant]
     Route: 065
  7. VENTOLIN [Concomitant]
     Route: 065
  8. CLENIL [Concomitant]
     Route: 055

REACTIONS (1)
  - Upper respiratory tract infection [Recovered/Resolved]
